FAERS Safety Report 16980831 (Version 18)
Quarter: 2023Q4

REPORT INFORMATION
  Report Type: Spontaneous
  Country: US (occurrence: US)
  Receive Date: 20191031
  Receipt Date: 20231218
  Transmission Date: 20240110
  Serious: Yes (Other)
  Sender: FDA-Public Use
  Company Number: US-PFIZER INC-2019472596

PATIENT
  Age: 77 Year
  Sex: Female

DRUGS (1)
  1. XELJANZ XR [Suspect]
     Active Substance: TOFACITINIB CITRATE
     Indication: Arthritis
     Dosage: 11 MG, DAILY (1 TABLET DAILY)

REACTIONS (16)
  - Cerebrovascular accident [Unknown]
  - Impaired driving ability [Unknown]
  - Memory impairment [Unknown]
  - Systemic lupus erythematosus [Unknown]
  - Diabetes mellitus [Unknown]
  - Fall [Unknown]
  - Ankle fracture [Unknown]
  - Off label use [Unknown]
  - Illness [Unknown]
  - Ulcer [Unknown]
  - Hypoacusis [Unknown]
  - Fatigue [Unknown]
  - Abdominal discomfort [Unknown]
  - Bladder disorder [Unknown]
  - COVID-19 [Unknown]
  - Malaise [Unknown]

NARRATIVE: CASE EVENT DATE: 19830101
